FAERS Safety Report 16113800 (Version 1)
Quarter: 2019Q1

REPORT INFORMATION
  Report Type: Spontaneous
  Country: US (occurrence: US)
  Receive Date: 20190325
  Receipt Date: 20190325
  Transmission Date: 20190418
  Serious: No
  Sender: FDA-Public Use
  Company Number: US-ALLERGAN-1836645US

PATIENT
  Age: 69 Year
  Sex: Male

DRUGS (3)
  1. LUMIGAN [Suspect]
     Active Substance: BIMATOPROST
     Dosage: 2 GTT, BID
     Route: 047
     Dates: start: 20180614, end: 20180618
  2. LUMIGAN [Suspect]
     Active Substance: BIMATOPROST
     Indication: INTRAOCULAR PRESSURE INCREASED
     Dosage: 1 GTT, QHS
     Route: 047
     Dates: start: 20180522, end: 20180614
  3. REFRESH PLUS [Concomitant]
     Active Substance: CARBOXYMETHYLCELLULOSE SODIUM
     Indication: PRODUCT USED FOR UNKNOWN INDICATION
     Dosage: (1-2 GTT) 4 GTT, PRN
     Route: 047

REACTIONS (12)
  - Lacrimation increased [Recovering/Resolving]
  - Incorrect dosage administered [Recovered/Resolved]
  - Inappropriate schedule of product administration [Unknown]
  - Photophobia [Recovering/Resolving]
  - Eye irritation [Recovering/Resolving]
  - Erythema of eyelid [Recovering/Resolving]
  - Visual acuity reduced [Recovering/Resolving]
  - Conjunctival hyperaemia [Recovering/Resolving]
  - Vision blurred [Recovering/Resolving]
  - Ulcerative keratitis [Recovering/Resolving]
  - Conjunctival oedema [Recovering/Resolving]
  - Eye pain [Recovering/Resolving]

NARRATIVE: CASE EVENT DATE: 20180522
